FAERS Safety Report 5366968-4 (Version None)
Quarter: 2007Q2

REPORT INFORMATION
  Report Type: 
  Country: None (occurrence: None)
  Receive Date: 20070622
  Receipt Date: 20070613
  Transmission Date: 20071010
  Serious: Yes (Death, Other)
  Sender: FDA-Public Use
  Company Number: US-PURDUE-USA_2007_0027779

PATIENT
  Age: 55 Year
  Sex: Female

DRUGS (4)
  1. OXYCONTIN [Suspect]
     Indication: TRIGEMINAL NEURALGIA
     Dosage: 130 MG, BID
  2. TOPAMAX [Concomitant]
     Indication: TRIGEMINAL NEURALGIA
  3. BACLOFEN [Concomitant]
     Indication: TRIGEMINAL NEURALGIA
  4. AMITRIPTYLINE HCL [Concomitant]
     Indication: TRIGEMINAL NEURALGIA

REACTIONS (3)
  - DRUG ABUSER [None]
  - MYOCARDIAL INFARCTION [None]
  - OVERDOSE [None]
